FAERS Safety Report 17746577 (Version 1)
Quarter: 2020Q2

REPORT INFORMATION
  Report Type: Spontaneous
  Country: DE (occurrence: DE)
  Receive Date: 20200505
  Receipt Date: 20200505
  Transmission Date: 20200714
  Serious: Yes (Other)
  Sender: FDA-Public Use
  Company Number: DE-PFIZER INC-2020178050

PATIENT
  Sex: Female

DRUGS (2)
  1. TRASTUZUMAB. [Suspect]
     Active Substance: TRASTUZUMAB
     Indication: BREAST CANCER FEMALE
     Dosage: DAILY DOSE: 6 MG/KG MILLIGRAM(S)/KILOGRAM EVERY 3 WEEKS
     Dates: start: 2015
  2. PERTUZUMAB. [Suspect]
     Active Substance: PERTUZUMAB
     Indication: BREAST CANCER FEMALE
     Dosage: DAILY DOSE: 420 MG MILLGRAM(S) EVERY 3 WEEKS
     Dates: start: 2015

REACTIONS (3)
  - Neuropathy peripheral [Not Recovered/Not Resolved]
  - Weight increased [Not Recovered/Not Resolved]
  - Rhinalgia [Not Recovered/Not Resolved]

NARRATIVE: CASE EVENT DATE: 201912
